FAERS Safety Report 4323359-2 (Version None)
Quarter: 2004Q1

REPORT INFORMATION
  Report Type: 
  Country: None (occurrence: None)
  Receive Date: 20040322
  Receipt Date: 20040310
  Transmission Date: 20041129
  Serious: Yes (Hospitalization)
  Sender: FDA-Public Use
  Company Number: 2004-03-0643

PATIENT
  Age: 70 Year
  Sex: Female
  Weight: 56 kg

DRUGS (6)
  1. GENTAMICIN SULFATE [Suspect]
     Indication: OSTEITIS
     Dosage: 160 MG QD INTRAVENOUS
     Route: 042
     Dates: start: 20031008, end: 20031024
  2. CIPROFLOXACIN [Suspect]
     Indication: OSTEITIS
     Dosage: 200MG IV QD INTRAVENOUS
     Route: 042
     Dates: start: 20031008, end: 20031024
  3. CIPROFLOXACIN [Suspect]
     Indication: OSTEITIS
     Dosage: 500 MG ORAL
     Route: 048
     Dates: start: 20031025, end: 20031026
  4. PARIET (RABEPRAZOLE SODIUM ) [Concomitant]
  5. LODOZ (BISOPROLOL/HYDROCHLOROTHIAZIDE) [Concomitant]
  6. MICARDIS [Concomitant]

REACTIONS (4)
  - ABDOMINAL PAIN UPPER [None]
  - DYSPEPSIA [None]
  - NAUSEA [None]
  - VOMITING [None]
